FAERS Safety Report 9879877 (Version 2)
Quarter: 2014Q2

REPORT INFORMATION
  Report Type: Report from Study
  Country: GB (occurrence: GB)
  Receive Date: 20140206
  Receipt Date: 20140524
  Transmission Date: 20141212
  Serious: Yes (Death)
  Sender: FDA-Public Use
  Company Number: GB-AMGEN-GBRCT2014007808

PATIENT
  Age: 71 Year
  Sex: Male
  Weight: 84 kg

DRUGS (10)
  1. ETANERCEPT [Suspect]
     Indication: ANKYLOSING SPONDYLITIS
     Dosage: 25 MG, 2X/WEEK
     Route: 065
     Dates: start: 20060320, end: 20120301
  2. ENOXAPARIN [Concomitant]
     Dosage: UNK
  3. FRUSEMIDE                          /00032601/ [Concomitant]
     Dosage: UNK
  4. OMEPRAZOLE [Concomitant]
     Dosage: UNK
  5. PARACETAMOL [Concomitant]
     Dosage: UNK
  6. SERETIDE [Concomitant]
     Dosage: UNK
  7. TIOTROPIUM [Concomitant]
     Dosage: UNK
  8. SALBUTAMOL [Concomitant]
     Dosage: UNK
  9. DIAMORPHINE [Concomitant]
     Dosage: UNK
  10. CYCLIZINE [Concomitant]
     Dosage: UNK

REACTIONS (2)
  - Oesophageal adenocarcinoma [Fatal]
  - Bronchopneumonia [Fatal]
